FAERS Safety Report 26190030 (Version 1)
Quarter: 2025Q4

REPORT INFORMATION
  Report Type: Spontaneous
  Country: US (occurrence: US)
  Receive Date: 20251223
  Receipt Date: 20251223
  Transmission Date: 20260117
  Serious: No
  Sender: STRIDES
  Company Number: US-STRIDES ARCOLAB LIMITED-2025SP009720

PATIENT
  Age: 54 Year
  Sex: Female

DRUGS (3)
  1. METHOTREXATE [Suspect]
     Active Substance: METHOTREXATE
     Indication: Cardiac sarcoidosis
     Dosage: 7.5 MILLIGRAM, ONCE A WEEK
     Route: 048
  2. PREDNISONE [Concomitant]
     Active Substance: PREDNISONE
     Indication: Cardiac sarcoidosis
     Dosage: 30 MILLIGRAM, QD
     Route: 065
  3. ADALIMUMAB [Concomitant]
     Active Substance: ADALIMUMAB
     Indication: Cardiac sarcoidosis
     Dosage: 40 MILLIGRAM, ONCE A WEEK
     Route: 058

REACTIONS (1)
  - Off label use [Unknown]
